FAERS Safety Report 10223740 (Version 2)
Quarter: 2014Q2

REPORT INFORMATION
  Report Type: Spontaneous
  Country: US (occurrence: US)
  Receive Date: 20140609
  Receipt Date: 20140609
  Transmission Date: 20141212
  Serious: No
  Sender: FDA-Public Use
  Company Number: US-DRREDDYS-USA/USA/14/0038779

PATIENT
  Age: 42 Year
  Sex: Female

DRUGS (3)
  1. MUCINEX ALLERGY (FEXOFENADINE) [Suspect]
     Indication: HYPERSENSITIVITY
     Route: 065
     Dates: start: 20140225, end: 20140226
  2. AMLODIPINE BESYLATE [Concomitant]
     Indication: HYPERTENSION
     Route: 065
  3. VENTOLIN [Concomitant]
     Indication: ASTHMA
     Route: 065

REACTIONS (2)
  - Urticaria [Unknown]
  - Hypersensitivity [Not Recovered/Not Resolved]
